FAERS Safety Report 9355816 (Version 1)
Quarter: 2013Q2

REPORT INFORMATION
  Report Type: Spontaneous
  Country: GR (occurrence: GR)
  Receive Date: 20130619
  Receipt Date: 20130619
  Transmission Date: 20140414
  Serious: Yes (Other)
  Sender: FDA-Public Use
  Company Number: CHNY2013GR001338

PATIENT
  Sex: Male

DRUGS (1)
  1. OTRIVIN [Suspect]
     Indication: NASAL OBSTRUCTION
     Dosage: UNK, UNK

REACTIONS (3)
  - Diabetes mellitus [Unknown]
  - Cardiac disorder [Unknown]
  - Overdose [Unknown]
